FAERS Safety Report 8614600-6 (Version None)
Quarter: 2012Q3

REPORT INFORMATION
  Report Type: 
  Country: None (occurrence: None)
  Receive Date: 20120809
  Receipt Date: 20120730
  Transmission Date: 20120928
  Serious: Yes (Other)
  Sender: FDA-Public Use
  Company Number: 217846

PATIENT
  Age: 65 Year
  Sex: Male
  Weight: 110 kg

DRUGS (8)
  1. DAIVOBET OINTMENT (DAIVOBET (OINTMENT) [Suspect]
     Indication: PSORIASIS
     Dosage: 1 IN 1 D, TOPICAL
     Route: 061
     Dates: start: 20100101
  2. COLCHICINE [Concomitant]
  3. BISOPROLOL FUMARATE [Concomitant]
  4. AMLODIPINE BESYLATE [Concomitant]
  5. PREVISCAN (FLUINDIONE) [Concomitant]
  6. ATORVASTATIN CALCIUM [Concomitant]
  7. NITROGLYCERIN [Concomitant]
  8. OMEPRAZOLE [Concomitant]

REACTIONS (1)
  - CATARACT [None]
